FAERS Safety Report 5223101-7 (Version None)
Quarter: 2007Q1

REPORT INFORMATION
  Report Type: 
  Country: None (occurrence: None)
  Receive Date: 20070122
  Receipt Date: 20070115
  Transmission Date: 20070707
  Serious: Yes (Death, Hospitalization)
  Sender: FDA-Public Use
  Company Number: HQWYE412115JAN07

PATIENT
  Age: 32 Year
  Sex: Male

DRUGS (12)
  1. PROGRAF, CONTROL SIROLIMUS (TACROLIMUS, CONTROL FOR SIROLIMUS, ) [Suspect]
     Indication: PROPHYLAXIS AGAINST TRANSPLANT REJECTION
     Dosage: SEE IMAGE
     Route: 048
     Dates: start: 20041026, end: 20041027
  2. PROGRAF, CONTROL SIROLIMUS (TACROLIMUS, CONTROL FOR SIROLIMUS, ) [Suspect]
     Indication: PROPHYLAXIS AGAINST TRANSPLANT REJECTION
     Dosage: SEE IMAGE
     Route: 048
     Dates: start: 20041028, end: 20041030
  3. PROGRAF, CONTROL SIROLIMUS (TACROLIMUS, CONTROL FOR SIROLIMUS, ) [Suspect]
     Indication: PROPHYLAXIS AGAINST TRANSPLANT REJECTION
     Dosage: SEE IMAGE
     Route: 048
     Dates: start: 20041031, end: 20060522
  4. PROGRAF, CONTROL SIROLIMUS (TACROLIMUS, CONTROL FOR SIROLIMUS, ) [Suspect]
     Indication: PROPHYLAXIS AGAINST TRANSPLANT REJECTION
     Dosage: SEE IMAGE
     Route: 048
     Dates: start: 20060523, end: 20061026
  5. PROGRAF, CONTROL SIROLIMUS (TACROLIMUS, CONTROL FOR SIROLIMUS, ) [Suspect]
     Indication: PROPHYLAXIS AGAINST TRANSPLANT REJECTION
     Dosage: SEE IMAGE
     Route: 048
     Dates: start: 20061027
  6. MYCOPHENOLATE MOFETIL [Concomitant]
  7. MYCOPHENOLATE MOFETIL [Concomitant]
  8. MYCOPHENOLATE MOFETIL [Concomitant]
  9. ZENAPAX [Concomitant]
  10. ZENAPAX [Concomitant]
  11. PREDNISONE TAB [Concomitant]
  12. PREDNISONE TAB [Concomitant]

REACTIONS (2)
  - CHRONIC ALLOGRAFT NEPHROPATHY [None]
  - DIABETES MELLITUS INADEQUATE CONTROL [None]
